FAERS Safety Report 12622784 (Version 1)
Quarter: 2016Q3

REPORT INFORMATION
  Report Type: Report from Study
  Country: US (occurrence: US)
  Receive Date: 20160804
  Receipt Date: 20160804
  Transmission Date: 20161109
  Serious: Yes (Hospitalization, Other)
  Sender: FDA-Public Use
  Company Number: US-GILEAD-2016-0226564

PATIENT
  Age: 65 Year
  Sex: Female

DRUGS (14)
  1. GLYBURIDE. [Concomitant]
     Active Substance: GLYBURIDE
  2. FUROSEMIDE. [Concomitant]
     Active Substance: FUROSEMIDE
  3. RANITIDINE. [Concomitant]
     Active Substance: RANITIDINE
  4. METOPROLOL. [Concomitant]
     Active Substance: METOPROLOL
  5. POTASSIUM [Concomitant]
     Active Substance: POTASSIUM
  6. PROAIR HFA [Concomitant]
     Active Substance: ALBUTEROL SULFATE
  7. FENOFIBRATE. [Concomitant]
     Active Substance: FENOFIBRATE
  8. SOMA [Concomitant]
     Active Substance: CARISOPRODOL
  9. TRILEPTAL [Concomitant]
     Active Substance: OXCARBAZEPINE
  10. AMBRISENTAN [Suspect]
     Active Substance: AMBRISENTAN
     Indication: PULMONARY HYPERTENSION
     Dosage: 10 MG, QD
     Route: 065
     Dates: start: 20120117
  11. LISINOPRIL. [Concomitant]
     Active Substance: LISINOPRIL
  12. TYLENOL [Concomitant]
     Active Substance: ACETAMINOPHEN
  13. UPTRAVI [Concomitant]
     Active Substance: SELEXIPAG
  14. METFORMIN [Concomitant]
     Active Substance: METFORMIN HYDROCHLORIDE

REACTIONS (1)
  - Shoulder arthroplasty [Recovered/Resolved]

NARRATIVE: CASE EVENT DATE: 20160601
